FAERS Safety Report 25059199 (Version 2)
Quarter: 2025Q1

REPORT INFORMATION
  Report Type: Spontaneous
  Country: IT (occurrence: IT)
  Receive Date: 20250310
  Receipt Date: 20250325
  Transmission Date: 20250408
  Serious: Yes (Hospitalization, Other)
  Sender: CHEPLAPHARM
  Company Number: None

PATIENT
  Age: 13 Year
  Sex: Female
  Weight: 60 kg

DRUGS (5)
  1. OLANZAPINE [Suspect]
     Active Substance: OLANZAPINE
     Indication: Mental disorder
     Dosage: DAILY DOSE: 2.5 MILLIGRAM
     Route: 048
     Dates: start: 20250130, end: 20250216
  2. LAMOTRIGINE [Suspect]
     Active Substance: LAMOTRIGINE
     Indication: Mental disorder
     Dosage: 50MG/DAY FROM 01/27 TO 02/03 DOSAGE INCREASED TO 100MG/DAY FROM 02/04 TO 15/02
     Route: 048
     Dates: start: 20250127, end: 20250203
  3. LAMOTRIGINE [Suspect]
     Active Substance: LAMOTRIGINE
     Indication: Mental disorder
     Dosage: 50MG/DAY FROM 01/27 TO 02/03 DOSAGE INCREASED TO 100MG/DAY FROM 02/04 TO 15/02
     Route: 048
     Dates: start: 20250204, end: 20250215
  4. AMISULPRIDE [Suspect]
     Active Substance: AMISULPRIDE
     Indication: Mental disorder
     Dosage: 50MG/DAY FROM 01/28 TO 02/06 DOSAGE REDUCED TO 25MG/DAY FROM 02/07 TO 02/16
     Route: 048
     Dates: start: 20250128, end: 20250206
  5. AMISULPRIDE [Suspect]
     Active Substance: AMISULPRIDE
     Indication: Mental disorder
     Dosage: 50MG/DAY FROM 01/28 TO 02/06 DOSAGE REDUCED TO 25MG/DAY FROM 02/07 TO 02/16
     Route: 048
     Dates: start: 20250207, end: 20250216

REACTIONS (1)
  - Stevens-Johnson syndrome [Recovering/Resolving]

NARRATIVE: CASE EVENT DATE: 20250210
